FAERS Safety Report 8589147-6 (Version None)
Quarter: 2012Q3

REPORT INFORMATION
  Report Type: 
  Country: None (occurrence: None)
  Receive Date: 20120813
  Receipt Date: 20120801
  Transmission Date: 20120928
  Serious: Yes (Other)
  Sender: FDA-Public Use
  Company Number: BR-INCYTE CORPORATION-2012IN001447

PATIENT
  Sex: Female
  Weight: 78.2 kg

DRUGS (2)
  1. INC424 [Suspect]
     Indication: MYELOFIBROSIS
     Dosage: 15 MG, BID
     Route: 048
     Dates: start: 20111219
  2. INC424 [Suspect]
     Dosage: UNK
     Dates: end: 20120801

REACTIONS (1)
  - NEUROPATHY PERIPHERAL [None]
